FAERS Safety Report 9477805 (Version 1)
Quarter: 2013Q3

REPORT INFORMATION
  Report Type: Spontaneous
  Country: US (occurrence: None)
  Receive Date: 20130826
  Receipt Date: 20130826
  Transmission Date: 20140515
  Serious: Yes (Death)
  Sender: FDA-Public Use
  Company Number: None

PATIENT
  Age: 59 Year
  Sex: Male

DRUGS (3)
  1. ZYTIGA 250MG JANSSEN BIOTECH [Suspect]
     Indication: PROSTATE CANCER
     Dosage: 1000MG DAILY PO
     Route: 048
     Dates: start: 20130131, end: 20130606
  2. MORPHINE [Concomitant]
  3. LORAZEPAM [Concomitant]

REACTIONS (1)
  - Death [None]
